FAERS Safety Report 6411154-X (Version None)
Quarter: 2009Q4

REPORT INFORMATION
  Report Type: 
  Country: None (occurrence: None)
  Receive Date: 20091022
  Receipt Date: 20091013
  Transmission Date: 20100525
  Serious: Yes (Other)
  Sender: FDA-Public Use
  Company Number: US-PFIZER INC-2007013801

PATIENT
  Sex: Male

DRUGS (2)
  1. XALATAN [Suspect]
     Dosage: UNK
     Route: 047
     Dates: start: 20050801
  2. XAL-EASE [Suspect]

REACTIONS (3)
  - CATARACT OPERATION [None]
  - DEVICE INEFFECTIVE [None]
  - TREMOR [None]
